FAERS Safety Report 20747043 (Version 3)
Quarter: 2023Q1

REPORT INFORMATION
  Report Type: Spontaneous
  Country: US (occurrence: US)
  Receive Date: 20220425
  Receipt Date: 20230203
  Transmission Date: 20230417
  Serious: No
  Sender: FDA-Public Use
  Company Number: US-PFIZER INC-202200360795

PATIENT
  Age: 78 Year
  Sex: Female

DRUGS (1)
  1. IBRANCE [Suspect]
     Active Substance: PALBOCICLIB
     Dosage: 125 MG

REACTIONS (4)
  - Fatigue [Unknown]
  - COVID-19 [Recovered/Resolved]
  - Blood cholesterol increased [Unknown]
  - Stress [Unknown]
